FAERS Safety Report 13034422 (Version 1)
Quarter: 2016Q4

REPORT INFORMATION
  Report Type: Spontaneous
  Country: US (occurrence: US)
  Receive Date: 20161216
  Receipt Date: 20161216
  Transmission Date: 20170207
  Serious: No
  Sender: FDA-Public Use
  Company Number: US-JNJFOC-20161120224

PATIENT
  Age: 69 Year
  Sex: Female
  Weight: 62.6 kg

DRUGS (4)
  1. BIOTIN [Concomitant]
     Active Substance: BIOTIN
     Indication: VITAMIN SUPPLEMENTATION
     Route: 065
  2. WOMENS ROGAINE UNSCENTED [Suspect]
     Active Substance: MINOXIDIL
     Route: 061
  3. WOMENS ROGAINE UNSCENTED [Suspect]
     Active Substance: MINOXIDIL
     Indication: ALOPECIA
     Dosage: HALF CAPFUL
     Route: 061
  4. LOSARTIN [Concomitant]
     Active Substance: LOSARTAN
     Indication: HYPERTENSION
     Route: 065

REACTIONS (7)
  - Product formulation issue [Unknown]
  - Intentional product misuse [Unknown]
  - Hair disorder [Not Recovered/Not Resolved]
  - Drug administration error [Not Recovered/Not Resolved]
  - Product use issue [Unknown]
  - Alopecia [Not Recovered/Not Resolved]
  - Product quality issue [Unknown]
